FAERS Safety Report 5203375-9 (Version None)
Quarter: 2007Q1

REPORT INFORMATION
  Report Type: 
  Country: None (occurrence: None)
  Receive Date: 20070110
  Receipt Date: 20070105
  Transmission Date: 20070707
  Serious: Yes (Death)
  Sender: FDA-Public Use
  Company Number: PHHO2006JP21830

PATIENT
  Age: 75 Year
  Sex: Male
  Weight: 61 kg

DRUGS (2)
  1. LASIX [Concomitant]
     Indication: HEPATIC CIRRHOSIS
     Dates: end: 20060317
  2. DIOVAN [Suspect]
     Indication: HYPERTENSION
     Dosage: 40 MG, QD
     Route: 048
     Dates: start: 20030610, end: 20060317

REACTIONS (1)
  - SUDDEN DEATH [None]
